FAERS Safety Report 22324172 (Version 2)
Quarter: 2023Q2

REPORT INFORMATION
  Report Type: Spontaneous
  Country: US (occurrence: US)
  Receive Date: 20230516
  Receipt Date: 20230616
  Transmission Date: 20230722
  Serious: Yes (Life-Threatening, Hospitalization)
  Sender: FDA-Public Use
  Company Number: US-BAYER-2023A062364

PATIENT
  Age: 65 Year

DRUGS (2)
  1. KERENDIA [Suspect]
     Active Substance: FINERENONE
     Indication: Type 2 diabetes mellitus
     Dosage: UNK
     Dates: start: 2023, end: 2023
  2. KERENDIA [Suspect]
     Active Substance: FINERENONE
     Indication: Chronic kidney disease

REACTIONS (4)
  - Hyponatraemia [Recovered/Resolved]
  - Fatigue [None]
  - Vomiting [None]
  - Confusional state [None]

NARRATIVE: CASE EVENT DATE: 20230101
